FAERS Safety Report 21218137 (Version 1)
Quarter: 2022Q3

REPORT INFORMATION
  Report Type: Spontaneous
  Country: US (occurrence: US)
  Receive Date: 20220816
  Receipt Date: 20220816
  Transmission Date: 20221027
  Serious: No
  Sender: FDA-Public Use
  Company Number: US-BION-009970

PATIENT

DRUGS (1)
  1. DIPHENHYDRAMINE [Suspect]
     Active Substance: DIPHENHYDRAMINE
     Indication: Sleep disorder
     Dosage: STRENGTH: 50MG

REACTIONS (5)
  - Hangover [Unknown]
  - Headache [Unknown]
  - Feeling abnormal [Unknown]
  - Product dosage form issue [Unknown]
  - Product substitution issue [Unknown]
